FAERS Safety Report 21308090 (Version 1)
Quarter: 2022Q3

REPORT INFORMATION
  Report Type: Spontaneous
  Country: GB (occurrence: None)
  Receive Date: 20220908
  Receipt Date: 20220908
  Transmission Date: 20221027
  Serious: Yes (Death)
  Sender: FDA-Public Use
  Company Number: GB-ROCHE-3162865

PATIENT
  Age: 23 Year
  Sex: Male
  Weight: 41.3 kg

DRUGS (6)
  1. ISOTRETINOIN [Suspect]
     Active Substance: ISOTRETINOIN
     Indication: Product used for unknown indication
     Route: 065
  2. EVRYSDI [Suspect]
     Active Substance: RISDIPLAM
     Indication: Spinal muscular atrophy
     Dosage: 6.6MLS
     Route: 048
     Dates: start: 202107, end: 20220812
  3. ALBUTEROL [Concomitant]
     Active Substance: ALBUTEROL
     Dosage: 2MG/5ML
     Route: 048
     Dates: start: 20220511
  4. FERROUS FUMARATE [Concomitant]
     Active Substance: FERROUS FUMARATE
     Dosage: 140MG/5M
     Route: 048
  5. PEPTAC (UNITED KINGDOM) [Concomitant]
     Route: 048
  6. VITAMIN D [Concomitant]
     Active Substance: VITAMIN D NOS

REACTIONS (2)
  - Libido decreased [Unknown]
  - Death [Fatal]

NARRATIVE: CASE EVENT DATE: 20220810
